FAERS Safety Report 24889425 (Version 1)
Quarter: 2025Q1

REPORT INFORMATION
  Report Type: Spontaneous
  Country: US (occurrence: None)
  Receive Date: 20250125
  Receipt Date: 20250125
  Transmission Date: 20250409
  Serious: Yes (Hospitalization)
  Sender: FDA-CTU
  Company Number: None

PATIENT
  Sex: Male
  Weight: 64.41 kg

DRUGS (4)
  1. WINREVAIR [Suspect]
     Active Substance: SOTATERCEPT-CSRK
     Route: 058
     Dates: start: 202410
  2. TADALAFIL [Concomitant]
     Active Substance: TADALAFIL
  3. AMBRISENTAN [Concomitant]
     Active Substance: AMBRISENTAN
  4. C-TREPROSTINIL(2ML)RM [Concomitant]

REACTIONS (6)
  - Fatigue [None]
  - Dizziness [None]
  - Sinus disorder [None]
  - Pain [None]
  - Sleep disorder [None]
  - Appetite disorder [None]
